FAERS Safety Report 4587723-9 (Version None)
Quarter: 2005Q1

REPORT INFORMATION
  Report Type: 
  Country: None (occurrence: None)
  Receive Date: 20050218
  Receipt Date: 20050127
  Transmission Date: 20050727
  Serious: Yes (Life-Threatening)
  Sender: FDA-Public Use
  Company Number: CN-MERCK-0501CHN00019

PATIENT
  Age: 83 Year
  Sex: Female

DRUGS (4)
  1. VIOXX [Suspect]
     Indication: FRACTURE
     Route: 048
     Dates: start: 20031102, end: 20041014
  2. VIOXX [Suspect]
     Indication: PAIN
     Route: 048
     Dates: start: 20031102, end: 20041014
  3. ALFACALCIDOL [Concomitant]
     Indication: OSTEOPOROSIS
     Route: 048
     Dates: start: 20031102
  4. ELCATONIN [Concomitant]
     Indication: OSTEOPOROSIS
     Route: 048
     Dates: start: 20031102

REACTIONS (4)
  - ACUTE MYOCARDIAL INFARCTION [None]
  - ANGINA PECTORIS [None]
  - ATRIOVENTRICULAR BLOCK COMPLETE [None]
  - CARDIOGENIC SHOCK [None]
